FAERS Safety Report 7155122-1 (Version None)
Quarter: 2010Q4

REPORT INFORMATION
  Report Type: 
  Country: None (occurrence: None)
  Receive Date: 20101214
  Receipt Date: 20091119
  Transmission Date: 20110411
  Serious: Yes (Other)
  Sender: FDA-Public Use
  Company Number: US-AMGEN-KDL375953

PATIENT

DRUGS (2)
  1. ENBREL [Suspect]
     Indication: RHEUMATOID ARTHRITIS
     Dosage: 50 MG, QWK
     Route: 058
     Dates: start: 20041101
  2. DESLORATADINE [Concomitant]

REACTIONS (5)
  - CYSTITIS [None]
  - FURUNCLE [None]
  - RHINITIS [None]
  - URINARY TRACT INFECTION [None]
  - VAGINITIS BACTERIAL [None]
